FAERS Safety Report 13370639 (Version 1)
Quarter: 2017Q1

REPORT INFORMATION
  Report Type: Spontaneous
  Country: US (occurrence: US)
  Receive Date: 20170324
  Receipt Date: 20170324
  Transmission Date: 20170429
  Serious: Yes (Other)
  Sender: FDA-Public Use
  Company Number: US-ROCHE-1255984

PATIENT
  Age: 63 Year
  Sex: Female

DRUGS (12)
  1. MONTELUKAST [Concomitant]
     Active Substance: MONTELUKAST SODIUM
  2. SANDOMIGRAN [Concomitant]
     Active Substance: PIZOTYLINE
  3. SPIRIVA [Concomitant]
     Active Substance: TIOTROPIUM BROMIDE MONOHYDRATE
  4. SYNTHROID [Concomitant]
     Active Substance: LEVOTHYROXINE SODIUM
  5. ATORVASTATIN [Concomitant]
     Active Substance: ATORVASTATIN
  6. NITRO (GLYCERYL TRINITRATE) [Concomitant]
     Active Substance: NITROGLYCERIN
  7. OMNARIS [Concomitant]
     Active Substance: CICLESONIDE
  8. BROMAZEPAM [Concomitant]
     Active Substance: BROMAZEPAM
     Route: 065
  9. SYMBICORT [Concomitant]
     Active Substance: BUDESONIDE\FORMOTEROL FUMARATE DIHYDRATE
  10. BABY ASPIRIN [Concomitant]
     Active Substance: ASPIRIN
  11. IRBESARTAN. [Concomitant]
     Active Substance: IRBESARTAN
  12. XOLAIR [Suspect]
     Active Substance: OMALIZUMAB
     Indication: ASTHMA
     Route: 058
     Dates: start: 20130722

REACTIONS (4)
  - Headache [Not Recovered/Not Resolved]
  - Cough [Not Recovered/Not Resolved]
  - Arthralgia [Not Recovered/Not Resolved]
  - Pain [Not Recovered/Not Resolved]

NARRATIVE: CASE EVENT DATE: 20130723
